FAERS Safety Report 8822096 (Version 3)
Quarter: 2013Q2

REPORT INFORMATION
  Report Type: Spontaneous
  Country: US (occurrence: US)
  Receive Date: 20121003
  Receipt Date: 20130517
  Transmission Date: 20140414
  Serious: Yes (Hospitalization)
  Sender: FDA-Public Use
  Company Number: US-BAYER-2012-099521

PATIENT
  Age: 34 Year
  Sex: Female
  Weight: 73 kg

DRUGS (9)
  1. YASMIN [Suspect]
     Indication: ACNE
     Dosage: UNK
     Dates: start: 19990101, end: 2004
  2. YASMIN [Suspect]
     Indication: PREMENSTRUAL SYNDROME
  3. OTHER ANALGESICS AND ANTIPYRETICS [Concomitant]
     Indication: MUSCLE SPASMS
     Dosage: 6 PILLS DAILY
  4. MULTIVITAMINS, PLAIN [Concomitant]
     Indication: REHABILITATION THERAPY
     Dosage: 2 A DAY
  5. PROPYLTHIOURACIL [Concomitant]
     Dosage: 50 MG, BID
     Route: 048
  6. PROPRANOLOL [Concomitant]
     Dosage: 10 MG, BID
     Route: 048
  7. ALLEGRA [Concomitant]
     Dosage: 60 MG, BID
     Route: 048
  8. FLONASE [Concomitant]
     Route: 045
  9. ALBUTEROL [Concomitant]
     Dosage: UNK UNK, PRN

REACTIONS (10)
  - Pulmonary embolism [Recovered/Resolved]
  - Pain [Recovered/Resolved]
  - General physical health deterioration [Recovered/Resolved]
  - Emotional distress [None]
  - Injury [Recovered/Resolved]
  - Anhedonia [None]
  - Anxiety [None]
  - Pain [None]
  - Mental disorder [None]
  - Dyspnoea [Recovered/Resolved]
